FAERS Safety Report 9972235 (Version 2)
Quarter: 2014Q2

REPORT INFORMATION
  Report Type: Spontaneous
  Country: US (occurrence: US)
  Receive Date: 20140306
  Receipt Date: 20140423
  Transmission Date: 20141212
  Serious: Yes (Hospitalization, Other)
  Sender: FDA-Public Use
  Company Number: US-NOVOPROD-401876

PATIENT
  Age: 57 Year
  Sex: Male
  Weight: 118.82 kg

DRUGS (7)
  1. VICTOZA [Suspect]
     Indication: TYPE 2 DIABETES MELLITUS
     Dosage: 0.6 MG, QD FOR 3 DAYS
     Route: 058
     Dates: start: 20120410
  2. VICTOZA [Suspect]
     Dosage: 1.2 MG, QD FOR 3 DAYS
     Route: 058
  3. VICTOZA [Suspect]
     Dosage: 1.8 MG, QD FOR 3 MONTHS
     Route: 058
     Dates: end: 20130926
  4. BYETTA [Suspect]
     Indication: TYPE 2 DIABETES MELLITUS
     Dosage: 12 U, QD
     Route: 058
     Dates: start: 20091029, end: 20120410
  5. JANUVIA [Suspect]
     Indication: TYPE 2 DIABETES MELLITUS
     Dosage: 100 MG, QD
     Route: 048
     Dates: start: 20081230, end: 20090330
  6. NOVOLOG [Concomitant]
     Indication: TYPE 2 DIABETES MELLITUS
     Dosage: 5 TO 10 UNITS, UNK
  7. LEVEMIR [Concomitant]
     Indication: TYPE 2 DIABETES MELLITUS
     Dosage: 60 U, UNK
     Route: 058

REACTIONS (1)
  - Pancreatic carcinoma [Unknown]
